FAERS Safety Report 8576134-7 (Version None)
Quarter: 2012Q3

REPORT INFORMATION
  Report Type: 
  Country: None (occurrence: None)
  Receive Date: 20120807
  Receipt Date: 20120730
  Transmission Date: 20120928
  Serious: Yes (Hospitalization)
  Sender: FDA-Public Use
  Company Number: CA-JNJFOC-20120800126

PATIENT
  Sex: Female
  Weight: 72 kg

DRUGS (2)
  1. REMICADE [Suspect]
     Indication: CROHN'S DISEASE
     Dosage: FOR 52 WEEKS
     Route: 042
     Dates: start: 20080101
  2. REMICADE [Suspect]
     Route: 042

REACTIONS (1)
  - ABDOMINAL HERNIA [None]
